FAERS Safety Report 11057559 (Version 4)
Quarter: 2015Q3

REPORT INFORMATION
  Report Type: Report from Study
  Country: DE (occurrence: DE)
  Receive Date: 20150422
  Receipt Date: 20150910
  Transmission Date: 20151125
  Serious: Yes (Death, Hospitalization)
  Sender: FDA-Public Use
  Company Number: PHHO2015DE006453

PATIENT
  Age: 76 Year
  Sex: Male
  Weight: 97 kg

DRUGS (4)
  1. TOZAM [Suspect]
     Active Substance: AMLODIPINE\LOSARTAN POTASSIUM
     Indication: PRODUCT USED FOR UNKNOWN INDICATION
     Dosage: 10 (1-1-0)
     Route: 065
  2. NVA237 [Suspect]
     Active Substance: GLYCOPYRROLATE
     Indication: CHRONIC OBSTRUCTIVE PULMONARY DISEASE
     Dosage: 50 UG, QD
     Route: 055
     Dates: start: 20150317
  3. LISINOPRIL. [Suspect]
     Active Substance: LISINOPRIL
     Indication: PRODUCT USED FOR UNKNOWN INDICATION
     Dosage: 5 (1-0-0)
     Route: 065
  4. PANTOPRAZOLE [Suspect]
     Active Substance: PANTOPRAZOLE SODIUM
     Indication: PRODUCT USED FOR UNKNOWN INDICATION
     Dosage: 40
     Route: 065
     Dates: start: 20150302

REACTIONS (2)
  - Pancreatitis [Fatal]
  - Shock [Fatal]

NARRATIVE: CASE EVENT DATE: 20150414
